FAERS Safety Report 14447335 (Version 2)
Quarter: 2018Q1

REPORT INFORMATION
  Report Type: Spontaneous
  Country: US (occurrence: US)
  Receive Date: 20180126
  Receipt Date: 20180227
  Transmission Date: 20180509
  Serious: Yes (Other)
  Sender: FDA-Public Use
  Company Number: US-AKORN PHARMACEUTICALS-2018AKN00083

PATIENT
  Age: 16 Year
  Sex: Male
  Weight: 60 kg

DRUGS (4)
  1. MYORISAN [Suspect]
     Active Substance: ISOTRETINOIN
     Indication: ACNE CYSTIC
     Dosage: 10 MG, 1X/DAY
     Dates: start: 20170818, end: 20171221
  2. MYORISAN [Suspect]
     Active Substance: ISOTRETINOIN
     Indication: ACNE CYSTIC
     Dosage: 40 MG, 1X/DAY
     Dates: start: 20170921, end: 20171221
  3. FLONASE [Concomitant]
     Active Substance: FLUTICASONE PROPIONATE
  4. MYORISAN [Suspect]
     Active Substance: ISOTRETINOIN
     Indication: ACNE CYSTIC
     Dosage: 60 MG, 1X/DAY
     Dates: start: 20171103, end: 20171221

REACTIONS (4)
  - Educational problem [Unknown]
  - Disturbance in attention [Unknown]
  - Off label use [Recovered/Resolved]
  - Irritability [Unknown]

NARRATIVE: CASE EVENT DATE: 2017
